FAERS Safety Report 7486426-0 (Version None)
Quarter: 2011Q2

REPORT INFORMATION
  Report Type: 
  Country: None (occurrence: None)
  Receive Date: 20110516
  Receipt Date: 20110516
  Transmission Date: 20111010
  Serious: Yes (Other)
  Sender: FDA-Public Use
  Company Number: None

PATIENT
  Age: 71 Year
  Sex: Female
  Weight: 63.5036 kg

DRUGS (1)
  1. METOPROLOL TARTRATE [Suspect]
     Indication: HYPERTENSION
     Dosage: 1/2 TABLET MORNING + EVENING PO
     Route: 048
     Dates: start: 20101104, end: 20110514

REACTIONS (4)
  - ABNORMAL SLEEP-RELATED EVENT [None]
  - DRY EYE [None]
  - EYE BURNS [None]
  - SOMNOLENCE [None]
